FAERS Safety Report 9064705 (Version 1)
Quarter: 2013Q1

REPORT INFORMATION
  Report Type: Spontaneous
  Country: GB (occurrence: GB)
  Receive Date: 20130213
  Receipt Date: 20130213
  Transmission Date: 20140127
  Serious: Yes (Death)
  Sender: FDA-Public Use
  Company Number: GB-ELI_LILLY_AND_COMPANY-GB201210001314

PATIENT
  Age: 66 None
  Sex: Female
  Weight: 90 kg

DRUGS (4)
  1. EFIENT [Suspect]
     Indication: ANGIOPLASTY
     Dosage: 60 MG, SINGLE
     Route: 048
     Dates: start: 20120222, end: 20120222
  2. REOPRO [Concomitant]
     Indication: MYOCARDIAL INFARCTION
     Dosage: BOLUS AND AS INFUSION
     Route: 042
     Dates: start: 20120222, end: 20120222
  3. HEPARIN [Concomitant]
  4. BIVALIRUDIN [Concomitant]

REACTIONS (3)
  - Circulatory collapse [Fatal]
  - Retroperitoneal haemorrhage [Fatal]
  - Intestinal haemorrhage [Fatal]
